FAERS Safety Report 25676045 (Version 3)
Quarter: 2025Q4

REPORT INFORMATION
  Report Type: Report from Study
  Country: US (occurrence: US)
  Receive Date: 20250813
  Receipt Date: 20251010
  Transmission Date: 20260117
  Serious: Yes (Other)
  Sender: MALLINCKRODT
  Company Number: US-MALLINCKRODT-MNK202504750

PATIENT
  Age: 76 Year
  Sex: Female

DRUGS (3)
  1. CORTICOTROPIN [Suspect]
     Active Substance: CORTICOTROPIN
     Indication: Nephrotic syndrome
     Dosage: 80 UNITS
     Route: 058
     Dates: start: 20250703
  2. IRON [Suspect]
     Active Substance: IRON
     Indication: Anaemia
     Dosage: UNKNOWN
  3. ELIQUIS [Concomitant]
     Active Substance: APIXABAN
     Dosage: UNKNOWN

REACTIONS (10)
  - Anaemia [Unknown]
  - Heart rate increased [Not Recovered/Not Resolved]
  - Hypotension [Unknown]
  - Anxiety [Unknown]
  - Abdominal pain upper [Recovering/Resolving]
  - Dizziness [Unknown]
  - Injection site bruising [Unknown]
  - Insomnia [Unknown]
  - Diarrhoea [Recovering/Resolving]
  - Decreased appetite [Recovering/Resolving]

NARRATIVE: CASE EVENT DATE: 20250101
